FAERS Safety Report 5051186-X (Version None)
Quarter: 2006Q3

REPORT INFORMATION
  Report Type: 
  Country: None (occurrence: None)
  Receive Date: 20060714
  Receipt Date: 20060531
  Transmission Date: 20061208
  Serious: Yes (Death, Life-Threatening)
  Sender: FDA-Public Use
  Company Number: US-RB-3390-2006

PATIENT
  Sex: Male
  Weight: 77.18 kg

DRUGS (9)
  1. BUPRENORPHINE HYDROCHLORIDE [Suspect]
     Indication: DRUG DEPENDENCE
     Route: 060
     Dates: start: 20060130, end: 20060130
  2. BUPRENORPHINE HYDROCHLORIDE [Suspect]
     Route: 060
     Dates: start: 20060131, end: 20060131
  3. CHLORDIAZEPOXIDE HCL [Concomitant]
     Indication: ALCOHOL WITHDRAWAL SYNDROME
     Route: 065
     Dates: start: 20060131, end: 20060131
  4. CHLORDIAZEPOXIDE HCL [Concomitant]
     Route: 065
     Dates: start: 20060131, end: 20060131
  5. CLONIDINE [Concomitant]
     Indication: ALCOHOL WITHDRAWAL SYNDROME
     Route: 065
     Dates: start: 20060131, end: 20060131
  6. PROMETHAZINE HCL [Concomitant]
     Indication: NAUSEA
     Route: 065
     Dates: start: 20060131, end: 20060131
  7. IBUPROFEN [Concomitant]
     Indication: PAIN
     Route: 065
     Dates: start: 20060131, end: 20060131
  8. PARACETAMOL [Concomitant]
     Indication: PAIN
     Route: 065
     Dates: start: 20060131, end: 20060131
  9. HYDROXYZINE EMBONATE [Concomitant]
     Indication: ANXIETY
     Route: 065
     Dates: start: 20060131, end: 20060131

REACTIONS (13)
  - ALCOHOL WITHDRAWAL SYNDROME [None]
  - BRAIN OEDEMA [None]
  - CARDIAC FAILURE CONGESTIVE [None]
  - CARDIOMEGALY [None]
  - CONVULSION [None]
  - DRUG TOXICITY [None]
  - GASTRITIS [None]
  - HEPATIC CONGESTION [None]
  - HYPOXIA [None]
  - PULMONARY CONGESTION [None]
  - RENAL DISORDER [None]
  - RESPIRATORY FAILURE [None]
  - SPLEEN CONGESTION [None]
